FAERS Safety Report 4814683-5 (Version None)
Quarter: 2005Q4

REPORT INFORMATION
  Report Type: 
  Country: None (occurrence: None)
  Receive Date: 20051028
  Receipt Date: 20041214
  Transmission Date: 20060501
  Serious: No
  Sender: FDA-Public Use
  Company Number: US-GLAXOSMITHKLINE-A0537248A

PATIENT
  Age: 62 Year
  Sex: Male

DRUGS (3)
  1. ADVAIR DISKUS 100/50 [Suspect]
     Indication: ASTHMA
     Route: 055
     Dates: start: 20030701
  2. ZYRTEC [Concomitant]
     Route: 065
  3. LIPITOR [Concomitant]

REACTIONS (2)
  - HEART RATE IRREGULAR [None]
  - HYPERTENSION [None]
